FAERS Safety Report 10610445 (Version 1)
Quarter: 2014Q4

REPORT INFORMATION
  Report Type: Spontaneous
  Country: FR (occurrence: None)
  Receive Date: 20141124
  Receipt Date: 20141124
  Transmission Date: 20150529
  Serious: Yes (Other)
  Sender: FDA-Public Use
  Company Number: FK2014GSK023663

PATIENT
  Age: 50 Year
  Sex: Male

DRUGS (3)
  1. TRUVADA (EMTRICITABINE + TEDOFOVIR DISOPROXIL FUMARATE) [Concomitant]
  2. VIRAMUNE [Concomitant]
     Active Substance: NEVIRAPINE
  3. CELSENTRI [Suspect]
     Active Substance: MARAVIROC
     Indication: HIV INFECTION
     Route: 048
     Dates: start: 20120620, end: 20130129

REACTIONS (2)
  - Condition aggravated [None]
  - Cholestasis [None]

NARRATIVE: CASE EVENT DATE: 20120620
